FAERS Safety Report 8204639-7 (Version None)
Quarter: 2012Q1

REPORT INFORMATION
  Report Type: 
  Country: None (occurrence: None)
  Receive Date: 20120313
  Receipt Date: 20120301
  Transmission Date: 20120608
  Serious: Yes (Other)
  Sender: FDA-Public Use
  Company Number: US-ELI_LILLY_AND_COMPANY-US201203000959

PATIENT
  Age: 48 Year
  Sex: Male

DRUGS (6)
  1. CIALIS [Suspect]
     Dosage: 2.5 MG, PRN
     Dates: start: 20120229, end: 20120229
  2. METOPROLOL SUCCINATE [Concomitant]
     Indication: SUPRAVENTRICULAR TACHYCARDIA
     Dosage: 45 MG, UNK
  3. ALCOHOL [Concomitant]
     Dosage: 2 DF, UNK
  4. METOPROLOL SUCCINATE [Concomitant]
     Dosage: 50 MG, UNK
  5. CIALIS [Suspect]
     Dosage: 5 MG, SINGLE
     Dates: start: 20120229, end: 20120229
  6. CIALIS [Suspect]
     Indication: ERECTILE DYSFUNCTION
     Dosage: 20 MG, UNK

REACTIONS (3)
  - HEART RATE INCREASED [None]
  - WRONG TECHNIQUE IN DRUG USAGE PROCESS [None]
  - VENTRICULAR EXTRASYSTOLES [None]
